FAERS Safety Report 12840684 (Version 1)
Quarter: 2016Q4

REPORT INFORMATION
  Report Type: Spontaneous
  Country: FR (occurrence: FR)
  Receive Date: 20161012
  Receipt Date: 20161012
  Transmission Date: 20170207
  Serious: Yes (Hospitalization)
  Sender: FDA-Public Use
  Company Number: FR-PFIZER INC-2016463651

PATIENT

DRUGS (1)
  1. ZOLOFT [Suspect]
     Active Substance: SERTRALINE HYDROCHLORIDE
     Indication: DEPRESSION
     Dosage: UNK
     Route: 064

REACTIONS (7)
  - Growth retardation [Unknown]
  - Thrombocytopenia [Recovered/Resolved]
  - Hypoglycaemia [Recovered/Resolved]
  - Cholestasis [Recovered/Resolved]
  - Pulmonary arterial hypertension [Recovered/Resolved]
  - Maternal exposure during pregnancy [Unknown]
  - Polycythaemia [Recovered/Resolved]

NARRATIVE: CASE EVENT DATE: 201609
